FAERS Safety Report 13940354 (Version 10)
Quarter: 2022Q1

REPORT INFORMATION
  Report Type: Report from Study
  Country: JP (occurrence: JP)
  Receive Date: 20170906
  Receipt Date: 20220316
  Transmission Date: 20220423
  Serious: Yes (Hospitalization, Other)
  Sender: FDA-Public Use
  Company Number: JP-OTSUKA-2017_019193

PATIENT
  Age: 45 Year
  Sex: Male
  Weight: 76 kg

DRUGS (5)
  1. PONATINIB [Suspect]
     Active Substance: PONATINIB
     Indication: Chronic myeloid leukaemia transformation
     Dosage: 15 MILLIGRAM, QD
     Route: 048
     Dates: start: 20170214, end: 20170918
  2. PONATINIB [Suspect]
     Active Substance: PONATINIB
     Dosage: 30 MILLIGRAM, QD
     Route: 048
     Dates: start: 20170919
  3. VFEND [Interacting]
     Active Substance: VORICONAZOLE
     Indication: Prophylaxis
     Dosage: UNK
     Route: 065
     Dates: start: 20170325, end: 20170416
  4. VFEND [Interacting]
     Active Substance: VORICONAZOLE
     Dosage: UNK
     Route: 065
     Dates: start: 20170623
  5. FLUCONAZOLE [Concomitant]
     Active Substance: FLUCONAZOLE
     Indication: Prophylaxis
     Dosage: UNK
     Route: 065
     Dates: start: 20170418, end: 20170716

REACTIONS (5)
  - Drug interaction [Unknown]
  - Graft versus host disease in lung [Recovering/Resolving]
  - Central nervous system leukaemia [Recovering/Resolving]
  - Chronic myeloid leukaemia recurrent [Recovering/Resolving]
  - Hepatic function abnormal [Recovering/Resolving]

NARRATIVE: CASE EVENT DATE: 20170329
